FAERS Safety Report 14415680 (Version 2)
Quarter: 2018Q2

REPORT INFORMATION
  Report Type: Not Available
  Country: US (occurrence: US)
  Receive Date: 20180122
  Receipt Date: 20180420
  Transmission Date: 20180711
  Serious: No
  Sender: FDA-Public Use
  Company Number: US-NEUROCRINE BIOSCIENCES INC.-2017NBI01733

PATIENT
  Sex: Female

DRUGS (26)
  1. DICYCLOMINE [Concomitant]
     Active Substance: DICYCLOMINE HYDROCHLORIDE
     Route: 048
  2. EZETIMIBE. [Concomitant]
     Active Substance: EZETIMIBE
     Indication: HYPERCHOLESTEROLAEMIA
     Route: 048
  3. GLIMEPIRIDE. [Concomitant]
     Active Substance: GLIMEPIRIDE
     Route: 048
  4. CANAGLIFLOZIN [Concomitant]
     Active Substance: CANAGLIFLOZIN
     Route: 048
  5. INFLUENZA [Concomitant]
     Active Substance: INFLUENZA VIRUS VACCINE
  6. HYDROCODONE-ACETAMINOPHEN [Concomitant]
     Active Substance: ACETAMINOPHEN\HYDROCODONE
     Indication: PAIN
     Dosage: 5-325 MG: 1 TABLET BY MOUTH EVERY 6 HOURS AS NEEDED
  7. ISOSORBIDE MONONITRATE. [Concomitant]
     Active Substance: ISOSORBIDE MONONITRATE
     Route: 048
  8. OMEPRAZOLE. [Concomitant]
     Active Substance: OMEPRAZOLE
     Route: 048
  9. INGREZZA [Suspect]
     Active Substance: VALBENAZINE
     Route: 048
     Dates: start: 20171107, end: 20171130
  10. CYMBALTA [Concomitant]
     Active Substance: DULOXETINE HYDROCHLORIDE
     Route: 048
  11. FLUOCINOLONE [Concomitant]
     Active Substance: FLUOCINOLONE
     Dosage: 0.01 % EXTERNAL OIL: APPLY TO SCALP AT BEDTIME
  12. FLUTICASONE. [Concomitant]
     Active Substance: FLUTICASONE
     Dosage: 50 MCG/ACTUATION: INSTILL TWO SPRAYS IN EACH NOSTRIL DAILY
  13. MELOXICAM. [Concomitant]
     Active Substance: MELOXICAM
     Route: 048
  14. INGREZZA [Suspect]
     Active Substance: VALBENAZINE
     Indication: PRODUCT USED FOR UNKNOWN INDICATION
     Route: 048
     Dates: start: 20171031, end: 20171106
  15. CLOBETASOL [Concomitant]
     Active Substance: CLOBETASOL
     Dosage: 0.05 % OINTMENT: APPLY TOPICALLY TWO TIMES A DAY
  16. DEPAKOTE [Concomitant]
     Active Substance: DIVALPROEX SODIUM
     Dosage: TAKE ONE 500 MG TABLET BY DAILY BY MOUTH AND TWO TABLETS AT BEDTIME
  17. ATENOLOL. [Concomitant]
     Active Substance: ATENOLOL
     Route: 048
  18. HYDROCHLOROTHIAZIDE. [Concomitant]
     Active Substance: HYDROCHLOROTHIAZIDE
     Route: 048
  19. NITROGLYCERIN. [Concomitant]
     Active Substance: NITROGLYCERIN
     Indication: CHEST PAIN
     Dosage: PLACE ONE TABLET UNDER THE TONGUE EVERY 5 MINUTES AS NEEDED
     Route: 060
  20. ROSUVASTATIN. [Concomitant]
     Active Substance: ROSUVASTATIN
     Route: 048
  21. SOLIFENACIN [Concomitant]
     Active Substance: SOLIFENACIN
     Route: 048
  22. ZOLPIDEM [Concomitant]
     Active Substance: ZOLPIDEM\ZOLPIDEM TARTRATE
     Route: 048
  23. LAMICTAL XR [Concomitant]
     Active Substance: LAMOTRIGINE
     Route: 048
  24. LISINOPRIL. [Concomitant]
     Active Substance: LISINOPRIL
     Route: 048
  25. SITAGLIPTIN-METFORMIN [Concomitant]
     Active Substance: METFORMIN\SITAGLIPTIN
     Dosage: 50-1000MG: 1 TABLET BY MOUTH 2 TIMES A DAY WITH MEALS
  26. VENTOLIN HFA [Concomitant]
     Active Substance: ALBUTEROL SULFATE
     Dosage: 90 MCG/ACTUATION: TWO INHALATIONS EVERY 6 HOURS AS NEEDED

REACTIONS (7)
  - Flushing [Recovered/Resolved]
  - Hyperphagia [Recovered/Resolved]
  - Anger [Recovered/Resolved]
  - Weight increased [Recovered/Resolved]
  - Feeling hot [Recovered/Resolved]
  - Somnolence [Recovered/Resolved]
  - Fatigue [Recovered/Resolved]

NARRATIVE: CASE EVENT DATE: 2017
